FAERS Safety Report 21665095 (Version 2)
Quarter: 2022Q4

REPORT INFORMATION
  Report Type: Spontaneous
  Country: FR (occurrence: FR)
  Receive Date: 20221130
  Receipt Date: 20221226
  Transmission Date: 20230112
  Serious: Yes (Hospitalization)
  Sender: FDA-Public Use
  Company Number: None

PATIENT
  Age: 66 Year
  Sex: Male

DRUGS (3)
  1. GENTAMICIN [Suspect]
     Active Substance: GENTAMICIN
     Indication: Sepsis
     Route: 065
     Dates: start: 20221104, end: 20221106
  2. GENTAMICIN [Suspect]
     Active Substance: GENTAMICIN
     Route: 065
     Dates: start: 20221108, end: 20221115
  3. CLINDAMYCIN [Suspect]
     Active Substance: CLINDAMYCIN
     Indication: Sepsis
     Dosage: CLINDAMYCINE BASE
     Route: 065
     Dates: start: 20221108, end: 20221114

REACTIONS (1)
  - Hyperbilirubinaemia [Recovering/Resolving]

NARRATIVE: CASE EVENT DATE: 20221109
